FAERS Safety Report 7497782-1 (Version None)
Quarter: 2011Q2

REPORT INFORMATION
  Report Type: 
  Country: None (occurrence: None)
  Receive Date: 20110524
  Receipt Date: 20110425
  Transmission Date: 20111010
  Serious: Yes (Hospitalization, Other)
  Sender: FDA-Public Use
  Company Number: US-BAYER-201039174NA

PATIENT
  Age: 39 Year
  Sex: Female
  Weight: 113 kg

DRUGS (5)
  1. BACTRIM [Concomitant]
     Indication: URINARY TRACT INFECTION
  2. GLUCOPHAGE [Concomitant]
     Indication: DIABETES MELLITUS
  3. YAZ [Suspect]
     Indication: PRODUCT USED FOR UNKNOWN INDICATION
     Route: 048
     Dates: start: 20060801
  4. ALBUTEROL SULFATE AUTOHALER [Concomitant]
     Indication: ASTHMA
  5. PONSTIL [Concomitant]

REACTIONS (4)
  - CARDIAC DISORDER [None]
  - FATIGUE [None]
  - MYOCARDIAL INFARCTION [None]
  - ASTHENIA [None]
